FAERS Safety Report 8957682 (Version 1)
Quarter: 2012Q4

REPORT INFORMATION
  Report Type: 
  Country: BR (occurrence: BR)
  Receive Date: 20121211
  Receipt Date: 20121211
  Transmission Date: 20130627
  Serious: Yes (Other)
  Sender: FDA-Public Use
  Company Number: BR-BAYER-2012-129022

PATIENT
  Sex: Female

DRUGS (5)
  1. BETAFERON [Suspect]
     Indication: MULTIPLE SCLEROSIS
     Dosage: 1 ml, QOD
     Route: 058
     Dates: start: 200508, end: 20121107
  2. SERTRALINE [Concomitant]
     Indication: STRESS
     Dosage: 1 DF, QD
     Route: 048
     Dates: start: 2005
  3. SERTRALINE [Concomitant]
     Indication: NERVOUSNESS
  4. BACLOFEN [Concomitant]
     Indication: MULTIPLE SCLEROSIS
     Dosage: 6 DF, QD
     Route: 048
     Dates: start: 2005
  5. DEPAKOTE [Concomitant]
     Indication: PRODUCT USED FOR UNKNOWN INDICATION
     Dosage: 1 DF, QD
     Route: 048

REACTIONS (9)
  - Stress [Recovered/Resolved]
  - Nervousness [Recovered/Resolved]
  - Fatigue [Recovering/Resolving]
  - Blood pressure increased [Recovered/Resolved]
  - Central nervous system lesion [Unknown]
  - Multiple sclerosis relapse [Recovered/Resolved]
  - Formication [Recovered/Resolved]
  - Visual acuity reduced [Recovered/Resolved]
  - Back pain [Recovered/Resolved]
